FAERS Safety Report 15619031 (Version 1)
Quarter: 2018Q4

REPORT INFORMATION
  Report Type: Spontaneous
  Country: US (occurrence: US)
  Receive Date: 20181114
  Receipt Date: 20181114
  Transmission Date: 20190205
  Serious: No
  Sender: FDA-Public Use
  Company Number: US-JNJFOC-20181044607

PATIENT
  Sex: Male
  Weight: 93.44 kg

DRUGS (9)
  1. POTASSIUM [Concomitant]
     Active Substance: POTASSIUM
     Route: 065
  2. PREDNISONE. [Concomitant]
     Active Substance: PREDNISONE
     Route: 065
  3. MAGNESIUM [Concomitant]
     Active Substance: MAGNESIUM
     Route: 065
  4. ZYTIGA [Suspect]
     Active Substance: ABIRATERONE ACETATE
     Indication: PROSTATE CANCER
     Route: 048
     Dates: start: 20171204
  5. CALCIUM [Concomitant]
     Active Substance: CALCIUM
     Route: 065
  6. XGEVA [Concomitant]
     Active Substance: DENOSUMAB
     Route: 065
  7. FLOMAX [Concomitant]
     Active Substance: TAMSULOSIN HYDROCHLORIDE
     Route: 065
  8. LUPRON [Concomitant]
     Active Substance: LEUPROLIDE ACETATE
     Route: 065
  9. BENADRYL [Concomitant]
     Active Substance: DIPHENHYDRAMINE HYDROCHLORIDE
     Route: 065

REACTIONS (1)
  - Blood pressure increased [Unknown]
